FAERS Safety Report 7028924-X (Version None)
Quarter: 2010Q4

REPORT INFORMATION
  Report Type: 
  Country: None (occurrence: None)
  Receive Date: 20101005
  Receipt Date: 20100928
  Transmission Date: 20110411
  Serious: Yes (Other)
  Sender: FDA-Public Use
  Company Number: A0764173A

PATIENT
  Age: 19 Year
  Sex: Male

DRUGS (3)
  1. LAMICTAL [Suspect]
     Dosage: 100MG PER DAY
     Route: 048
     Dates: start: 20081030
  2. UNKNOWN MEDICATION [Concomitant]
  3. NO CONCURRENT MEDICATION [Concomitant]

REACTIONS (4)
  - ACNE [None]
  - ALOPECIA [None]
  - ANDROGENETIC ALOPECIA [None]
  - PSORIASIS [None]
